FAERS Safety Report 8632154 (Version 3)
Quarter: 2012Q4

REPORT INFORMATION
  Report Type: 
  Country: JP (occurrence: JP)
  Receive Date: 20120625
  Receipt Date: 20120914
  Transmission Date: 20130627
  Serious: Yes (Hospitalization)
  Sender: FDA-Public Use
  Company Number: JP-UCBSA-059597

PATIENT
  Age: 42 Year
  Sex: Female
  Weight: 48 kg

DRUGS (7)
  1. E KEPPRA [Suspect]
     Indication: EPILEPSY
     Route: 048
     Dates: start: 20120601, end: 20120605
  2. E KEPPRA [Suspect]
     Indication: EPILEPSY
     Route: 048
     Dates: start: 20120518, end: 20120531
  3. LAMICTAL [Concomitant]
     Dosage: DAILY DOSE-200 MG
     Route: 048
     Dates: start: 20110805
  4. GABAPEN [Concomitant]
     Dosage: DAILY DOSE-2400 MG
     Route: 048
     Dates: start: 20110805
  5. TEGRETOL [Concomitant]
     Dosage: DAILY DOSE-800 MG
     Route: 048
     Dates: start: 20110805
  6. DEPAKENE [Concomitant]
     Dosage: DAILY DOSE-700 MG
     Route: 048
     Dates: start: 20110805
  7. ALEVIATIN [Concomitant]
     Dosage: DAILY DOSE-250 MG
     Route: 048
     Dates: start: 20110805

REACTIONS (3)
  - White blood cell count decreased [Recovered/Resolved]
  - Platelet count decreased [Recovered/Resolved]
  - Hepatic function abnormal [Recovered/Resolved]
